FAERS Safety Report 8030136-8 (Version None)
Quarter: 2011Q4

REPORT INFORMATION
  Report Type: 
  Country: None (occurrence: None)
  Receive Date: 20111130
  Receipt Date: 20110711
  Transmission Date: 20120403
  Serious: Yes (Other)
  Sender: FDA-Public Use
  Company Number: US201002003751

PATIENT
  Sex: Female
  Weight: 106.6 kg

DRUGS (18)
  1. EXENATIDE UNK STRENGTH PEN, DISPOSABLE DEVICE (EXENATIDE PEN (UNKNOWN [Concomitant]
  2. LYRICA [Concomitant]
  3. VASOTEC /00574902/ (ENALAPRIL MALEATE) [Concomitant]
  4. POTASSIUM CHLORIDE [Concomitant]
  5. JANUMET [Concomitant]
  6. CALCIUM CARBONATE [Concomitant]
  7. TRICOR [Concomitant]
  8. FUROSEMIDE [Concomitant]
  9. PIOGLITAZONE (PIOGLITAZONE UNKNOWN FORMULATION) [Concomitant]
  10. GLIMEPIRIDE [Concomitant]
  11. QUININE SULFATE [Concomitant]
  12. LEVEMIR (INSULIN DETERMIR) [Concomitant]
  13. TYLENOL /SCH/ (PARACETAMOL) [Concomitant]
  14. FOLIC ACID [Concomitant]
  15. LANOXIN [Concomitant]
  16. BYETTA [Suspect]
     Dates: start: 20070601, end: 20081101
  17. ASCORBIC ACID [Concomitant]
  18. HYDROCODONE BITARTRATE [Concomitant]

REACTIONS (1)
  - PANCREATITIS [None]
